FAERS Safety Report 25245694 (Version 1)
Quarter: 2025Q2

REPORT INFORMATION
  Report Type: Spontaneous
  Country: BR (occurrence: BR)
  Receive Date: 20250428
  Receipt Date: 20250428
  Transmission Date: 20250717
  Serious: Yes (Other)
  Sender: UCB
  Company Number: BR-UCBSA-2025023565

PATIENT
  Age: 60 Year
  Sex: Male

DRUGS (4)
  1. KEPPRA [Suspect]
     Active Substance: LEVETIRACETAM
     Indication: Glioblastoma
     Dosage: 250 MILLIGRAM, ONCE DAILY (QD)
     Dates: start: 202312
  2. KEPPRA [Suspect]
     Active Substance: LEVETIRACETAM
     Indication: Off label use
     Dosage: 500 MILLIGRAM, ONCE DAILY (QD)
     Dates: start: 202312
  3. KEPPRA [Suspect]
     Active Substance: LEVETIRACETAM
     Dosage: 750 MILLIGRAM, 2X/DAY (BID)
     Dates: start: 202312
  4. DECADRON [Concomitant]
     Active Substance: DEXAMETHASONE
     Indication: Brain oedema
     Dosage: 40 MILLIGRAM, 3X/DAY (TID)

REACTIONS (7)
  - Glioblastoma multiforme [Unknown]
  - Brain operation [Unknown]
  - Dysphagia [Unknown]
  - Swelling [Unknown]
  - Headache [Unknown]
  - Product dose omission issue [Unknown]
  - Off label use [Unknown]

NARRATIVE: CASE EVENT DATE: 20241001
